FAERS Safety Report 5355307-0 (Version None)
Quarter: 2007Q2

REPORT INFORMATION
  Report Type: 
  Country: None (occurrence: None)
  Receive Date: 20070601
  Receipt Date: 20070215
  Transmission Date: 20071010
  Serious: Yes (Hospitalization)
  Sender: FDA-Public Use
  Company Number: S07-USA-00733-01

PATIENT
  Age: 50 Year
  Sex: Female

DRUGS (7)
  1. CAMPRAL [Suspect]
     Indication: ALCOHOLISM
     Dosage: 666 MG TID; PO
     Route: 048
     Dates: start: 20061101
  2. XANAX [Suspect]
     Indication: ANXIETY
     Dates: end: 20070317
  3. ALCOHOL [Suspect]
     Dates: end: 20070317
  4. LEXAPRO [Concomitant]
  5. AMBIEN CR [Concomitant]
  6. LISINOPRINE [Concomitant]
  7. PROPRANOLOL [Concomitant]

REACTIONS (5)
  - ANXIETY [None]
  - DEPRESSION [None]
  - OVERDOSE [None]
  - POOR QUALITY SLEEP [None]
  - SUICIDE ATTEMPT [None]
